FAERS Safety Report 16481010 (Version 1)
Quarter: 2019Q2

REPORT INFORMATION
  Report Type: Spontaneous
  Country: US (occurrence: US)
  Receive Date: 20190626
  Receipt Date: 20190626
  Transmission Date: 20190711
  Serious: Yes (Other)
  Sender: FDA-Public Use
  Company Number: US-SHIRE-US201920166

PATIENT
  Sex: Male

DRUGS (2)
  1. BACTRIM [Concomitant]
     Active Substance: SULFAMETHOXAZOLE\TRIMETHOPRIM
     Indication: PRODUCT USED FOR UNKNOWN INDICATION
     Route: 065
  2. GAMMAGARD LIQUID [Suspect]
     Active Substance: HUMAN IMMUNOGLOBULIN G
     Indication: COMBINED IMMUNODEFICIENCY
     Dosage: APPROX 15 GRAM, 1X A MONTH
     Route: 042

REACTIONS (8)
  - Tubulointerstitial nephritis [Unknown]
  - Hepatic enzyme increased [Unknown]
  - Muscle spasms [Unknown]
  - Fungal infection [Unknown]
  - Pneumocystis jirovecii pneumonia [Unknown]
  - Granuloma skin [Unknown]
  - Osteopenia [Unknown]
  - Bacterial infection [Unknown]
